FAERS Safety Report 5346138-6 (Version None)
Quarter: 2007Q2

REPORT INFORMATION
  Report Type: 
  Country: None (occurrence: None)
  Receive Date: 20070601
  Receipt Date: 20070521
  Transmission Date: 20071010
  Serious: Yes (Other)
  Sender: FDA-Public Use
  Company Number: S07-GER-02105-01

PATIENT
  Age: 69 Year
  Sex: Female
  Weight: 50 kg

DRUGS (3)
  1. CITALOPRAM HYDROBROMIDE [Suspect]
     Indication: DEPRESSION
     Dates: start: 20070122, end: 20070215
  2. KATADOLON (FLUPIRTINE MALEATE) [Suspect]
     Indication: PAIN
     Dosage: 400 MG QD PO
     Route: 048
     Dates: start: 20061211, end: 20070215
  3. NEXIUM [Suspect]
     Indication: PROPHYLAXIS
     Dosage: 20 MG QD PO
     Route: 048
     Dates: start: 20070122, end: 20070215

REACTIONS (1)
  - HEPATITIS CHOLESTATIC [None]
